FAERS Safety Report 23010054 (Version 7)
Quarter: 2023Q4

REPORT INFORMATION
  Report Type: Spontaneous
  Country: US (occurrence: US)
  Receive Date: 20230929
  Receipt Date: 20231213
  Transmission Date: 20240110
  Serious: No
  Sender: FDA-Public Use
  Company Number: US-PFIZER INC-202300267438

PATIENT
  Age: 13 Year
  Sex: Male

DRUGS (1)
  1. GENOTROPIN [Suspect]
     Active Substance: SOMATROPIN
     Indication: Growth hormone deficiency
     Dosage: 1.5 MG, 1X/DAY
     Dates: start: 20230905

REACTIONS (6)
  - Drug dose omission by device [Unknown]
  - Device use issue [Unknown]
  - Device breakage [Unknown]
  - Device issue [Unknown]
  - Device information output issue [Unknown]
  - Device mechanical issue [Unknown]
